FAERS Safety Report 7525686-4 (Version None)
Quarter: 2011Q2

REPORT INFORMATION
  Report Type: 
  Country: None (occurrence: None)
  Receive Date: 20110606
  Receipt Date: 20110601
  Transmission Date: 20111010
  Serious: Yes (Death, Life-Threatening, Other)
  Sender: FDA-Public Use
  Company Number: PHHY2011JP47949

PATIENT
  Age: 10 Year
  Sex: Male

DRUGS (2)
  1. SANDIMMUNE [Suspect]
     Dosage: UNK UKN, UNK
     Route: 041
  2. CYCLOSPORINE [Suspect]
     Dosage: 2MG/KG
     Route: 048

REACTIONS (5)
  - ACUTE RESPIRATORY DISTRESS SYNDROME [None]
  - RESPIRATORY FAILURE [None]
  - INTERSTITIAL LUNG DISEASE [None]
  - ATELECTASIS [None]
  - T-LYMPHOCYTE COUNT DECREASED [None]
